FAERS Safety Report 8523500-1 (Version None)
Quarter: 2012Q3

REPORT INFORMATION
  Report Type: 
  Country: None (occurrence: None)
  Receive Date: 20120716
  Receipt Date: 20120716
  Transmission Date: 20120928
  Serious: Yes (Other)
  Sender: FDA-Public Use
  Company Number: None

PATIENT
  Age: 73 Year
  Sex: Female
  Weight: 118 kg

DRUGS (14)
  1. CLOTRIMAZOLE [Concomitant]
  2. EUCERIN (UREA) [Concomitant]
  3. ALBUMINAR [Suspect]
     Indication: URINE OUTPUT DECREASED
     Dosage: SEE IMAGE
     Route: 042
     Dates: start: 20120429, end: 20120429
  4. ALBUMINAR [Suspect]
     Indication: URINE OUTPUT DECREASED
     Dosage: SEE IMAGE
     Route: 042
     Dates: start: 20120419, end: 20120419
  5. PREDNISONE TAB [Concomitant]
  6. BALMEX (BALMEX) [Concomitant]
  7. FUROSEMIDE (FUROSEMIDE) [Concomitant]
  8. MAGNESIUM HYDROXIDE TAB [Concomitant]
  9. VANCOMYCIN [Concomitant]
  10. HEPARIN [Concomitant]
  11. ASPIRIN [Concomitant]
  12. DOCUSATE (DOCUSATE) [Concomitant]
  13. METOPROLOL TARTRATE [Concomitant]
  14. ALBUTEROL SULFATE AND IPRATROPIUM BROMIDE [Concomitant]

REACTIONS (4)
  - HYPOTENSION [None]
  - HYPERVOLAEMIA [None]
  - OFF LABEL USE [None]
  - RESPIRATORY RATE INCREASED [None]
